FAERS Safety Report 10956295 (Version 1)
Quarter: 2015Q1

REPORT INFORMATION
  Report Type: Spontaneous
  Country: DE (occurrence: DE)
  Receive Date: 20150326
  Receipt Date: 20150326
  Transmission Date: 20150721
  Serious: Yes (Death, Life-Threatening)
  Sender: FDA-Public Use
  Company Number: DE-ELI_LILLY_AND_COMPANY-DE201503001720

PATIENT
  Sex: Female
  Weight: 64 kg

DRUGS (1)
  1. CYRAMZA [Suspect]
     Active Substance: RAMUCIRUMAB
     Indication: METASTATIC GASTRIC CANCER
     Dosage: 8 MG/KG, UNKNOWN
     Route: 042
     Dates: start: 20150205, end: 20150219

REACTIONS (3)
  - Malignant neoplasm progression [Fatal]
  - Lung infection [Fatal]
  - Diverticular perforation [Unknown]

NARRATIVE: CASE EVENT DATE: 20150302
